FAERS Safety Report 8505409-2 (Version None)
Quarter: 2012Q3

REPORT INFORMATION
  Report Type: 
  Country: None (occurrence: None)
  Receive Date: 20120712
  Receipt Date: 20120706
  Transmission Date: 20120928
  Serious: Yes (Hospitalization, Other)
  Sender: FDA-Public Use
  Company Number: US-PFIZER INC-2012130479

PATIENT
  Sex: Male

DRUGS (2)
  1. INSULIN [Suspect]
     Dosage: UNK
  2. REVATIO [Suspect]
     Dosage: UNK

REACTIONS (6)
  - HEAD INJURY [None]
  - INCORRECT DOSE ADMINISTERED [None]
  - UPPER LIMB FRACTURE [None]
  - FALL [None]
  - SPONTANEOUS PENILE ERECTION [None]
  - BLOOD GLUCOSE DECREASED [None]
